FAERS Safety Report 7681307-1 (Version None)
Quarter: 2011Q3

REPORT INFORMATION
  Report Type: 
  Country: None (occurrence: None)
  Receive Date: 20110812
  Receipt Date: 20110802
  Transmission Date: 20111222
  Serious: Yes (Hospitalization)
  Sender: FDA-Public Use
  Company Number: JP-JNJFOC-20080301631

PATIENT
  Sex: Male
  Weight: 73 kg

DRUGS (49)
  1. PREDNISOLONE [Concomitant]
     Route: 048
     Dates: start: 20060925
  2. PREDNISOLONE [Concomitant]
     Route: 048
     Dates: start: 20070115, end: 20070125
  3. PREDNISOLONE [Concomitant]
     Route: 048
     Dates: start: 20061030, end: 20061112
  4. PREDNISOLONE [Concomitant]
     Route: 048
     Dates: start: 20070115, end: 20070125
  5. PREDNISOLONE [Concomitant]
     Route: 048
     Dates: start: 20070126, end: 20070325
  6. IMURAN [Concomitant]
     Indication: BEHCET'S SYNDROME
     Route: 048
  7. SOLU-MEDROL [Concomitant]
     Indication: BEHCET'S SYNDROME
     Dates: start: 20060922, end: 20060924
  8. INFLIXIMAB [Suspect]
     Dosage: 4TH INFUSION
     Route: 042
     Dates: start: 20070521
  9. PREDNISOLONE [Concomitant]
     Indication: EYE DISORDER
     Route: 048
     Dates: start: 20070417
  10. PREDNISOLONE [Concomitant]
     Route: 048
     Dates: start: 20070126, end: 20070325
  11. PREDNISOLONE [Concomitant]
     Route: 048
     Dates: start: 20061127, end: 20061210
  12. PREDNISOLONE [Concomitant]
     Route: 048
     Dates: start: 20030717, end: 20060921
  13. PREDNISOLONE [Concomitant]
     Route: 048
     Dates: start: 20061113, end: 20061126
  14. PREDNISOLONE [Concomitant]
     Route: 048
     Dates: start: 20061127, end: 20061210
  15. PREDNISOLONE [Concomitant]
     Route: 048
     Dates: start: 20060925
  16. LANSOPRAZOLE [Concomitant]
     Indication: PROPHYLAXIS
     Route: 048
  17. PREDNISOLONE [Concomitant]
     Route: 048
     Dates: start: 20070326, end: 20070416
  18. PREDNISOLONE [Concomitant]
     Route: 048
     Dates: start: 20061211, end: 20061224
  19. PREDNISOLONE [Concomitant]
     Indication: BEHCET'S SYNDROME
     Route: 048
     Dates: start: 20061211, end: 20061224
  20. PREDNISOLONE [Concomitant]
     Route: 048
     Dates: start: 20030717, end: 20060921
  21. PREDNISOLONE [Concomitant]
     Route: 048
     Dates: start: 20070417
  22. IMURAN [Concomitant]
     Route: 048
     Dates: start: 20061127
  23. IMURAN [Concomitant]
     Route: 048
     Dates: start: 20061127
  24. PENTASA [Concomitant]
     Indication: PROPHYLAXIS
     Route: 048
  25. PENTASA [Concomitant]
     Route: 048
     Dates: start: 20070726, end: 20080121
  26. SOLU-MEDROL [Concomitant]
     Indication: EYE DISORDER
     Dates: start: 20060922, end: 20060924
  27. INFLIXIMAB [Suspect]
     Dosage: 9TH INFUSION
     Route: 042
     Dates: start: 20080215
  28. INFLIXIMAB [Suspect]
     Dosage: 8TH INFUSION
     Route: 042
     Dates: start: 20071221
  29. PREDNISOLONE [Concomitant]
     Route: 048
     Dates: start: 20061225, end: 20070114
  30. PREDNISOLONE [Concomitant]
     Route: 048
  31. INFLIXIMAB [Suspect]
     Dosage: 1ST INFUSION
     Route: 042
     Dates: start: 20061226
  32. ANTIHISTAMINES [Concomitant]
     Dates: start: 20070126, end: 20070126
  33. PREDNISOLONE [Concomitant]
     Route: 048
     Dates: start: 20070326, end: 20070416
  34. COLCHICINE [Concomitant]
     Indication: EYE DISORDER
     Route: 048
     Dates: start: 20010709, end: 20060922
  35. INFLIXIMAB [Suspect]
     Dosage: 3RD INFUSION
     Route: 042
     Dates: start: 20070323
  36. PREDNISOLONE [Concomitant]
     Route: 048
     Dates: start: 20061225, end: 20070114
  37. IMURAN [Concomitant]
     Indication: PROPHYLAXIS
     Route: 048
  38. PREDNISOLONE [Concomitant]
     Route: 048
  39. PREDNISOLONE [Concomitant]
     Route: 048
     Dates: start: 20061030, end: 20061112
  40. COLCHICINE [Concomitant]
     Indication: BEHCET'S SYNDROME
     Route: 048
     Dates: start: 20010709, end: 20060922
  41. INFLIXIMAB [Suspect]
     Indication: BEHCET'S SYNDROME
     Dosage: 7TH INFUSION
     Route: 042
     Dates: start: 20071102
  42. INFLIXIMAB [Suspect]
     Dosage: 2ND INFUSION
     Route: 042
     Dates: start: 20070126
  43. INFLIXIMAB [Suspect]
     Dosage: 6TH INFUSION
     Route: 042
     Dates: start: 20070907
  44. INFLIXIMAB [Suspect]
     Dosage: 5TH INFUSION
     Route: 042
     Dates: start: 20070713
  45. ANTIHISTAMINES [Concomitant]
     Indication: PROPHYLAXIS
     Dates: start: 20070323, end: 20070323
  46. ANTIHISTAMINES [Concomitant]
     Dates: start: 20061212, end: 20061212
  47. ANTIHISTAMINES [Concomitant]
     Dates: start: 20061226, end: 20061226
  48. PREDNISOLONE [Concomitant]
     Route: 048
     Dates: start: 20061113, end: 20061126
  49. ALFAROL [Concomitant]
     Indication: PROPHYLAXIS
     Route: 048

REACTIONS (2)
  - INTESTINAL ULCER [None]
  - ENTERITIS INFECTIOUS [None]
